FAERS Safety Report 6880595-9 (Version None)
Quarter: 2010Q3

REPORT INFORMATION
  Report Type: 
  Country: None (occurrence: None)
  Receive Date: 20100727
  Receipt Date: 20091027
  Transmission Date: 20110219
  Serious: No
  Sender: FDA-Public Use
  Company Number: A0813861A

PATIENT
  Age: 91 Year
  Sex: Female

DRUGS (2)
  1. ZANTAC [Suspect]
     Indication: PRODUCT USED FOR UNKNOWN INDICATION
     Route: 065
  2. PLAVIX [Suspect]
     Indication: STENT PLACEMENT
     Dosage: 75MG ALTERNATE DAYS
     Route: 048
     Dates: start: 20090201, end: 20091002

REACTIONS (1)
  - OESOPHAGEAL PAIN [None]
